FAERS Safety Report 9898098 (Version 1)
Quarter: 2014Q1

REPORT INFORMATION
  Report Type: Spontaneous
  Country: AR (occurrence: AR)
  Receive Date: 20140214
  Receipt Date: 20140214
  Transmission Date: 20141002
  Serious: Yes (Hospitalization)
  Sender: FDA-Public Use
  Company Number: AR-BAYER-2014-020382

PATIENT
  Sex: Male

DRUGS (1)
  1. BAYASPIRINA [Suspect]
     Route: 048

REACTIONS (2)
  - Loss of consciousness [None]
  - Hypersensitivity [Unknown]
